FAERS Safety Report 7991565-1 (Version None)
Quarter: 2011Q4

REPORT INFORMATION
  Report Type: 
  Country: None (occurrence: None)
  Receive Date: 20111219
  Receipt Date: 20111216
  Transmission Date: 20120403
  Serious: Yes (Other)
  Sender: FDA-Public Use
  Company Number: US-PFIZER INC-2011163292

PATIENT
  Sex: Female

DRUGS (2)
  1. LORAZEPAM [Suspect]
     Dosage: UNK
  2. SERTRALINE HYDROCHLORIDE [Suspect]
     Dosage: UNK

REACTIONS (4)
  - OBSESSIVE-COMPULSIVE DISORDER [None]
  - ABDOMINAL DISTENSION [None]
  - ACTIVITIES OF DAILY LIVING IMPAIRED [None]
  - WEIGHT INCREASED [None]
